FAERS Safety Report 6161810-6 (Version None)
Quarter: 2009Q2

REPORT INFORMATION
  Report Type: 
  Country: None (occurrence: None)
  Receive Date: 20090421
  Receipt Date: 20090414
  Transmission Date: 20091009
  Serious: Yes (Other)
  Sender: FDA-Public Use
  Company Number: FR-ROCHE-627509

PATIENT
  Age: 27 Year
  Sex: Female

DRUGS (5)
  1. VALIUM [Suspect]
     Route: 048
     Dates: start: 20090407, end: 20090408
  2. VALIUM [Suspect]
     Route: 048
     Dates: start: 20090409, end: 20090410
  3. VALIUM [Suspect]
     Route: 048
     Dates: start: 20090411, end: 20090412
  4. VALIUM [Suspect]
     Route: 048
     Dates: start: 20090413
  5. TERCIAN [Suspect]
     Indication: DRUG USE FOR UNKNOWN INDICATION
     Route: 065

REACTIONS (2)
  - MALAISE [None]
  - MYDRIASIS [None]
